FAERS Safety Report 21913747 (Version 1)
Quarter: 2023Q1

REPORT INFORMATION
  Report Type: Spontaneous
  Country: US (occurrence: US)
  Receive Date: 20230125
  Receipt Date: 20230125
  Transmission Date: 20230418
  Serious: No
  Sender: FDA-Public Use
  Company Number: US-ALLERGAN-2219155US

PATIENT
  Sex: Female

DRUGS (3)
  1. BOTOX [Suspect]
     Active Substance: ONABOTULINUMTOXINA
     Indication: Migraine
     Dosage: UNK UNK, SINGLE
     Route: 058
     Dates: start: 20220101, end: 20220101
  2. Nuertec [Concomitant]
     Indication: Migraine
     Route: 048
     Dates: start: 20211001, end: 20211101
  3. OLANZAPINE [Concomitant]
     Active Substance: OLANZAPINE
     Indication: Migraine
     Route: 048
     Dates: start: 20210719, end: 20220201

REACTIONS (3)
  - Incorrect route of product administration [Unknown]
  - Migraine [Unknown]
  - Headache [Unknown]
